FAERS Safety Report 7409344-2 (Version None)
Quarter: 2011Q1

REPORT INFORMATION
  Report Type: 
  Country: None (occurrence: None)
  Receive Date: 20110301
  Receipt Date: 20100913
  Transmission Date: 20110831
  Serious: Yes (Hospitalization)
  Sender: FDA-Public Use
  Company Number: RB-15250-2010

PATIENT
  Age: 44 Year
  Sex: Male

DRUGS (2)
  1. SUBOXONE [Suspect]
     Indication: PRODUCT USED FOR UNKNOWN INDICATION
     Dosage: (DOSING DETAILS UNKNOWN, STATES HE CUTS THE FILM INTO 4 PIECES UNKNOWN)
  2. SUBOXONE [Suspect]
     Indication: DRUG DEPENDENCE
     Dosage: (8 MG BID SUBLINGUAL)
     Route: 060
     Dates: start: 20100301

REACTIONS (4)
  - CHEST PAIN [None]
  - PNEUMONIA [None]
  - INTENTIONAL DRUG MISUSE [None]
  - DRUG WITHDRAWAL SYNDROME [None]
